FAERS Safety Report 5222213-1 (Version None)
Quarter: 2007Q1

REPORT INFORMATION
  Report Type: 
  Country: None (occurrence: None)
  Receive Date: 20070129
  Receipt Date: 20060929
  Transmission Date: 20070707
  Serious: No
  Sender: FDA-Public Use
  Company Number: US-GLAXOSMITHKLINE-A0621935A

PATIENT
  Age: 64 Year
  Sex: Male

DRUGS (2)
  1. WELLBUTRIN [Suspect]
     Indication: DEPRESSION
     Dosage: 75MG PER DAY
     Route: 048
     Dates: start: 20060814
  2. NORVASC [Concomitant]

REACTIONS (6)
  - AGITATION [None]
  - ANXIETY [None]
  - CHANGE OF BOWEL HABIT [None]
  - CHILLS [None]
  - GASTRIC DISORDER [None]
  - INSOMNIA [None]
